FAERS Safety Report 6792598-3 (Version None)
Quarter: 2010Q2

REPORT INFORMATION
  Report Type: 
  Country: None (occurrence: None)
  Receive Date: 20100624
  Receipt Date: 20080911
  Transmission Date: 20101027
  Serious: No
  Sender: FDA-Public Use
  Company Number: US-PFIZER INC-2008077004

PATIENT
  Sex: Male
  Weight: 97.5 kg

DRUGS (2)
  1. SUTENT [Suspect]
  2. BACTRIM [Interacting]

REACTIONS (2)
  - DRUG INTERACTION [None]
  - DRUG TOXICITY [None]
